FAERS Safety Report 8219205-7 (Version None)
Quarter: 2012Q1

REPORT INFORMATION
  Report Type: 
  Country: None (occurrence: None)
  Receive Date: 20120319
  Receipt Date: 20120308
  Transmission Date: 20120608
  Serious: Yes (Other)
  Sender: FDA-Public Use
  Company Number: ES-JNJFOC-20120304375

PATIENT
  Age: 53 Year
  Sex: Male
  Weight: 70 kg

DRUGS (4)
  1. MESALAMINE [Concomitant]
     Route: 048
     Dates: start: 19910101
  2. REMICADE [Suspect]
     Indication: COLITIS ULCERATIVE
     Dosage: 6 INFUSIONS
     Route: 042
     Dates: start: 20110906, end: 20120208
  3. METFORMIN HYDROCHLORIDE [Concomitant]
     Indication: TYPE 2 DIABETES MELLITUS
     Dates: start: 20110315
  4. PREDNISONE [Concomitant]
     Route: 048
     Dates: start: 20110906, end: 20111020

REACTIONS (1)
  - MALIGNANT MELANOMA [None]
